FAERS Safety Report 10880755 (Version 2)
Quarter: 2015Q2

REPORT INFORMATION
  Report Type: Report from Study
  Country: US (occurrence: US)
  Receive Date: 20150303
  Receipt Date: 20150409
  Transmission Date: 20150821
  Serious: Yes (Hospitalization)
  Sender: FDA-Public Use
  Company Number: US-BIOGENIDEC-2015BI025422

PATIENT
  Age: 60 Year
  Sex: Male

DRUGS (3)
  1. AVONEX [Suspect]
     Active Substance: INTERFERON BETA-1A
     Indication: MULTIPLE SCLEROSIS
     Route: 030
     Dates: start: 20060127, end: 20120926
  2. PREDNISONE. [Concomitant]
     Active Substance: PREDNISONE
  3. AVONEX [Suspect]
     Active Substance: INTERFERON BETA-1A
     Indication: MULTIPLE SCLEROSIS
     Route: 030
     Dates: start: 20120927

REACTIONS (5)
  - Glucose tolerance impaired [Not Recovered/Not Resolved]
  - Pyrexia [Not Recovered/Not Resolved]
  - Pneumonia [Recovered/Resolved]
  - Pulmonary embolism [Recovered/Resolved]
  - Blood glucose increased [Not Recovered/Not Resolved]

NARRATIVE: CASE EVENT DATE: 201502
